FAERS Safety Report 26191676 (Version 1)
Quarter: 2025Q4

REPORT INFORMATION
  Report Type: Spontaneous
  Country: CN (occurrence: CN)
  Receive Date: 20251223
  Receipt Date: 20251223
  Transmission Date: 20260118
  Serious: Yes (Hospitalization)
  Sender: NOVARTIS
  Company Number: CN-002147023-NVSC2025CN194111

PATIENT
  Age: 16 Year
  Sex: Male
  Weight: 51 kg

DRUGS (4)
  1. OXCARBAZEPINE [Suspect]
     Active Substance: OXCARBAZEPINE
     Indication: Self-medication
     Dosage: 10.000 DOSAGE FORM, QD
     Route: 048
     Dates: start: 20251211, end: 20251211
  2. QUETIAPINE FUMARATE [Suspect]
     Active Substance: QUETIAPINE FUMARATE
     Indication: Self-medication
     Dosage: 30.000 DOSAGE FORM, QD
     Route: 048
     Dates: start: 20251211, end: 20251211
  3. SERTRALINE HYDROCHLORIDE [Suspect]
     Active Substance: SERTRALINE HYDROCHLORIDE
     Indication: Self-medication
     Dosage: 30.000 DOSAGE FORM, QD
     Route: 048
     Dates: start: 20251211, end: 20251211
  4. LITHIUM CARBONATE [Suspect]
     Active Substance: LITHIUM CARBONATE
     Indication: Self-medication
     Dosage: 30.000 DOSAGE FORM, QD
     Route: 048
     Dates: start: 20251211, end: 20251211

REACTIONS (3)
  - Poisoning [Recovering/Resolving]
  - Nausea [Recovering/Resolving]
  - Vomiting [Recovering/Resolving]

NARRATIVE: CASE EVENT DATE: 20251211
